FAERS Safety Report 8920581 (Version 1)
Quarter: 2012Q4

REPORT INFORMATION
  Report Type: Report from Study
  Country: US (occurrence: US)
  Receive Date: 20121121
  Receipt Date: 20121121
  Transmission Date: 20130627
  Serious: Yes (Life-Threatening)
  Sender: FDA-Public Use
  Company Number: US-ROCHE-1155669

PATIENT
  Age: 48 Year
  Sex: Male
  Weight: 107.5 kg

DRUGS (16)
  1. BEVACIZUMAB [Suspect]
     Indication: GASTROOESOPHAGEAL CANCER
     Route: 042
     Dates: start: 20120307
  2. CAPECITABINE [Suspect]
     Indication: GASTROOESOPHAGEAL CANCER
     Route: 048
     Dates: start: 20120307
  3. TRASTUZUMAB [Suspect]
     Indication: GASTROOESOPHAGEAL CANCER
     Route: 065
  4. OXALIPLATIN [Suspect]
     Indication: GASTROOESOPHAGEAL CANCER
     Route: 065
  5. ATENOLOL [Concomitant]
  6. COMPAZINE [Concomitant]
  7. DEXAMETHASONE [Concomitant]
  8. DIPHENOXYLATE W ATROPINE [Concomitant]
  9. FERROUS SULPHATE [Concomitant]
  10. LEVOFLOXACIN [Concomitant]
  11. LORAZEPAM [Concomitant]
  12. LOSARTAN [Concomitant]
  13. OMEPRAZOLE [Concomitant]
  14. SIMVASTIN [Concomitant]
  15. VITAMIN C [Concomitant]
  16. ZOFRAN [Concomitant]

REACTIONS (1)
  - Hypertriglyceridaemia [Recovering/Resolving]
